FAERS Safety Report 20243780 (Version 1)
Quarter: 2021Q4

REPORT INFORMATION
  Report Type: Spontaneous
  Country: GB (occurrence: GB)
  Receive Date: 20211228
  Receipt Date: 20211228
  Transmission Date: 20220304
  Serious: Yes (Death, Hospitalization, Other)
  Sender: FDA-Public Use
  Company Number: GB-MHRA-EYC 00268742

PATIENT
  Age: 15 Year
  Sex: Male

DRUGS (10)
  1. LACOSAMIDE [Suspect]
     Active Substance: LACOSAMIDE
     Indication: Product used for unknown indication
     Dosage: 1 DOSAGE FORM TOTAL (10MG OR 30MG NOT SURE LOW ONLY ONE TAKEN)
     Route: 048
  2. PHENYTOIN [Suspect]
     Active Substance: PHENYTOIN
     Indication: Product used for unknown indication
     Dosage: UNK (100MG AM 200MG PM)
     Route: 048
  3. BRIVIACT [Suspect]
     Active Substance: BRIVARACETAM
     Indication: Product used for unknown indication
     Dosage: UNK (15MG IN MARCH AND 10MG IN JUNE OR JULY)
     Route: 048
     Dates: start: 201803, end: 201806
  4. KEPPRA [Suspect]
     Active Substance: LEVETIRACETAM
     Indication: Product used for unknown indication
     Dosage: 250 MILLIGRAM, TWO TIMES A DAY (AS ADD ON TO RUFINAMIDE)
     Route: 048
  5. PERAMPANEL [Suspect]
     Active Substance: PERAMPANEL
     Indication: Product used for unknown indication
     Dosage: UNK (I DON^T RECALL)
     Route: 048
     Dates: start: 202002, end: 20200409
  6. RUFINAMIDE [Suspect]
     Active Substance: RUFINAMIDE
     Indication: Product used for unknown indication
     Dosage: 500 MILLIGRAM, TWO TIMES A DAY
     Route: 048
  7. SULTHIAME [Suspect]
     Active Substance: SULTHIAME
     Indication: Product used for unknown indication
     Dosage: 500 MILLIGRAM, TWO TIMES A DAY
     Route: 048
  8. ZONISAMIDE [Suspect]
     Active Substance: ZONISAMIDE
     Indication: Product used for unknown indication
     Dosage: UNK (100MG PM 50 MG AM)
     Route: 048
     Dates: start: 2017, end: 20200410
  9. PREDNISOLONE [Suspect]
     Active Substance: PREDNISOLONE
     Indication: Product used for unknown indication
     Dosage: UNK (VERY HIGH DOSE FOR 28 DAYS)
     Route: 048
     Dates: start: 201803, end: 201803
  10. CARBAMAZEPINE [Suspect]
     Active Substance: CARBAMAZEPINE
     Indication: Product used for unknown indication
     Dosage: UNK
     Route: 065

REACTIONS (16)
  - Psychotic disorder [Fatal]
  - Hallucination, auditory [Fatal]
  - Sudden unexplained death in epilepsy [Fatal]
  - Aggression [Fatal]
  - Generalised onset non-motor seizure [Fatal]
  - Asthenia [Fatal]
  - Depressed mood [Fatal]
  - Fatigue [Fatal]
  - Seizure cluster [Fatal]
  - Postictal paralysis [Fatal]
  - Anxiety [Fatal]
  - Emotional disorder [Fatal]
  - Crying [Fatal]
  - Fear [Fatal]
  - Body temperature fluctuation [Fatal]
  - Atonic seizures [Fatal]

NARRATIVE: CASE EVENT DATE: 20180301
